FAERS Safety Report 7404981-3 (Version None)
Quarter: 2011Q2

REPORT INFORMATION
  Report Type: 
  Country: None (occurrence: None)
  Receive Date: 20110411
  Receipt Date: 20110330
  Transmission Date: 20111010
  Serious: Yes (Hospitalization, Other)
  Sender: FDA-Public Use
  Company Number: TR-JNJFOC-20101107608

PATIENT
  Age: 17 Year
  Sex: Female
  Weight: 76 kg

DRUGS (2)
  1. CONCERTA [Suspect]
     Indication: ATTENTION DEFICIT/HYPERACTIVITY DISORDER
     Route: 048
  2. CONCERTA [Suspect]
     Route: 048

REACTIONS (4)
  - TACHYCARDIA [None]
  - DEPRESSED MOOD [None]
  - SUICIDE ATTEMPT [None]
  - INTENTIONAL OVERDOSE [None]
